FAERS Safety Report 7802724-2 (Version None)
Quarter: 2011Q4

REPORT INFORMATION
  Report Type: 
  Country: None (occurrence: None)
  Receive Date: 20111007
  Receipt Date: 20110929
  Transmission Date: 20120403
  Serious: Yes (Hospitalization)
  Sender: FDA-Public Use
  Company Number: US-ABBOTT-11P-163-0859746-01

PATIENT
  Sex: Female

DRUGS (21)
  1. HUMIRA [Suspect]
     Route: 058
     Dates: start: 20081001
  2. HUMIRA [Suspect]
     Route: 058
     Dates: start: 20090602, end: 20091231
  3. GAS-X [Concomitant]
     Indication: FLATULENCE
     Dates: start: 20080401
  4. ACETAMINOPHEN [Concomitant]
     Indication: ARTHRALGIA
     Dosage: 500MG/25MG
     Dates: start: 20090101
  5. BENADRYL [Concomitant]
     Indication: INJECTION RELATED REACTION
  6. PREVACID [Concomitant]
     Indication: GASTROOESOPHAGEAL REFLUX DISEASE
     Dates: start: 20080508
  7. CYMBALTA [Concomitant]
     Indication: DEPRESSION
  8. HUMIRA [Suspect]
     Route: 058
  9. CALCIUM CARBONATE [Concomitant]
     Indication: MINERAL SUPPLEMENTATION
     Dates: start: 20060501
  10. VITAMIN B-12 [Concomitant]
     Indication: VITAMIN SUPPLEMENTATION
     Dates: start: 20060303
  11. COLESTIPOL HYDROCHLORIDE [Concomitant]
     Dosage: 1 APPLICATION
     Dates: start: 20090415
  12. FERROUS SULFATE TAB [Concomitant]
     Indication: BLOOD IRON
     Dates: start: 20090101
  13. CYMBALTA [Concomitant]
     Indication: ANXIETY
     Dates: start: 20090415
  14. FOLIC ACID [Concomitant]
     Indication: VITAMIN SUPPLEMENTATION
     Dates: start: 20050901
  15. CIMZIA [Concomitant]
     Indication: CROHN'S DISEASE
  16. COLESTIPOL HYDROCHLORIDE [Concomitant]
     Indication: DIARRHOEA
     Dates: start: 20080408, end: 20080701
  17. BENADRYL [Concomitant]
     Indication: PROPHYLAXIS
     Dates: start: 20080911
  18. HUMIRA [Suspect]
     Indication: CROHN'S DISEASE
     Route: 058
     Dates: start: 20071207, end: 20071207
  19. HUMIRA [Suspect]
     Route: 058
  20. VITAMIN D [Concomitant]
     Indication: VITAMIN SUPPLEMENTATION
     Dates: start: 20060303
  21. PRENATAL VITAMINS [Concomitant]
     Indication: VITAMIN SUPPLEMENTATION
     Dates: start: 20080701

REACTIONS (1)
  - CROHN'S DISEASE [None]
